FAERS Safety Report 4691982-1 (Version None)
Quarter: 2005Q2

REPORT INFORMATION
  Report Type: 
  Country: None (occurrence: None)
  Receive Date: 20050616
  Receipt Date: 20050616
  Transmission Date: 20051028
  Serious: Yes (Hospitalization)
  Sender: FDA-Public Use
  Company Number: None

PATIENT
  Age: 32 Year

DRUGS (3)
  1. TRAMADOL HCL [Suspect]
     Indication: BACK PAIN
     Dosage: 50 MG    PO
     Route: 048
     Dates: start: 20040919, end: 20040919
  2. DURAGESIC-100 [Suspect]
     Dosage: TRANSDERMA
     Route: 062
  3. PERCOCET [Concomitant]

REACTIONS (6)
  - EYE ROLLING [None]
  - SELF-MEDICATION [None]
  - SYNCOPE [None]
  - TACHYCARDIA [None]
  - TONGUE BITING [None]
  - TREMOR [None]
